FAERS Safety Report 8854606 (Version 1)
Quarter: 2012Q4

REPORT INFORMATION
  Report Type: 
  Country: FR (occurrence: FR)
  Receive Date: 20121023
  Receipt Date: 20121023
  Transmission Date: 20130627
  Serious: Yes (Life-Threatening, Hospitalization)
  Sender: FDA-Public Use
  Company Number: FR-PFIZER INC-2012259993

PATIENT
  Age: 67 Year
  Sex: Female

DRUGS (4)
  1. XANAX [Suspect]
     Dosage: 0.25 mg, 3x/day
     Route: 048
     Dates: start: 20120510, end: 20120516
  2. XANAX [Suspect]
     Dosage: 0.25 mg, 4x/day
     Route: 048
     Dates: start: 20120517, end: 20120520
  3. SEROPLEX [Suspect]
     Indication: DEPRESSION
     Dosage: 5 mg, 1x/day
     Route: 048
     Dates: start: 20120510, end: 20120518
  4. SEROPLEX [Suspect]
     Dosage: 10 mg, 1x/day
     Route: 048
     Dates: start: 20120519, end: 20120520

REACTIONS (1)
  - Suicide attempt [Recovered/Resolved with Sequelae]
